FAERS Safety Report 7151795-8 (Version None)
Quarter: 2010Q4

REPORT INFORMATION
  Report Type: 
  Country: None (occurrence: None)
  Receive Date: 20101123
  Receipt Date: 20100831
  Transmission Date: 20110411
  Serious: No
  Sender: FDA-Public Use
  Company Number: 018141

PATIENT
  Sex: Female
  Weight: 54.4 kg

DRUGS (10)
  1. CIMZIA [Suspect]
     Indication: CROHN'S DISEASE
     Dosage: (400 MG 1X/MONTH SUBCUTANEOUS)
     Route: 058
     Dates: start: 20100623
  2. CIMZIA [Suspect]
     Indication: OSTEOARTHRITIS
     Dosage: (400 MG 1X/MONTH SUBCUTANEOUS)
     Route: 058
     Dates: start: 20100623
  3. CYMBALTA [Concomitant]
  4. WELLBUTRIN [Concomitant]
  5. PROTONIX [Concomitant]
  6. LIBRAX [Concomitant]
  7. TRAMADOL [Concomitant]
  8. DARVOCET [Concomitant]
  9. XANAX [Concomitant]
  10. RESTASIS [Concomitant]

REACTIONS (2)
  - ECZEMA [None]
  - HEADACHE [None]
